FAERS Safety Report 20576198 (Version 1)
Quarter: 2022Q1

REPORT INFORMATION
  Report Type: Spontaneous
  Country: US (occurrence: US)
  Receive Date: 20220310
  Receipt Date: 20220310
  Transmission Date: 20220423
  Serious: Yes (Other)
  Sender: FDA-Public Use
  Company Number: US-LUPIN PHARMACEUTICALS INC.-2022-03161

PATIENT
  Age: 74 Year
  Sex: Male

DRUGS (13)
  1. QUETIAPINE FUMARATE [Suspect]
     Active Substance: QUETIAPINE FUMARATE
     Indication: Catatonia
     Dosage: 50 MG
     Route: 065
  2. ZOLPIDEM [Suspect]
     Active Substance: ZOLPIDEM TARTRATE
     Indication: Catatonia
     Dosage: 5 MG
     Route: 065
  3. ZOLPIDEM [Suspect]
     Active Substance: ZOLPIDEM TARTRATE
     Dosage: TITRATED TO 10 MG, TID
     Route: 065
  4. VENLAFAXINE [Suspect]
     Active Substance: VENLAFAXINE HYDROCHLORIDE
     Indication: Catatonia
     Dosage: EXTENDED-RELEASE 225MG EVERY MORNING
     Route: 065
  5. LITHIUM CARBONATE [Concomitant]
     Active Substance: LITHIUM CARBONATE
     Indication: Catatonia
     Dosage: MAXIMAL LEVEL 0.68 MEQ/L
     Route: 065
  6. CLONAZEPAM [Concomitant]
     Active Substance: CLONAZEPAM
     Indication: Catatonia
     Dosage: 2 MG, BID
     Route: 065
  7. LORAZEPAM [Concomitant]
     Active Substance: LORAZEPAM
     Indication: Catatonia
     Dosage: 1.5 MG, QID
     Route: 042
  8. LORAZEPAM [Concomitant]
     Active Substance: LORAZEPAM
     Dosage: 3 MG, QID
     Route: 042
  9. LORAZEPAM [Concomitant]
     Active Substance: LORAZEPAM
     Dosage: 16 MG, QD
     Route: 042
  10. LORAZEPAM [Concomitant]
     Active Substance: LORAZEPAM
     Dosage: 3 MG, QD
     Route: 042
  11. VALPROIC ACID [Concomitant]
     Active Substance: VALPROIC ACID
     Indication: Catatonia
     Dosage: UNK
     Route: 065
  12. AMANTADINE [Concomitant]
     Active Substance: AMANTADINE
     Indication: Catatonia
     Dosage: 100 MG, BID
     Route: 065
  13. AMANTADINE [Concomitant]
     Active Substance: AMANTADINE
     Dosage: 400 MG, QD
     Route: 065

REACTIONS (3)
  - Drug ineffective for unapproved indication [Unknown]
  - Therapeutic response shortened [Unknown]
  - Off label use [Unknown]
